FAERS Safety Report 24128533 (Version 4)
Quarter: 2025Q3

REPORT INFORMATION
  Report Type: Spontaneous
  Country: US (occurrence: US)
  Receive Date: 20240723
  Receipt Date: 20250718
  Transmission Date: 20251020
  Serious: No
  Sender: NOVO NORDISK
  Company Number: US-NOVOPROD-1162383

PATIENT
  Age: 69 Year
  Sex: Female

DRUGS (6)
  1. RYBELSUS [Suspect]
     Active Substance: SEMAGLUTIDE
     Indication: Weight control
  2. RYBELSUS [Suspect]
     Active Substance: SEMAGLUTIDE
     Indication: Glycosylated haemoglobin abnormal
     Route: 048
     Dates: start: 20240106
  3. RYBELSUS [Suspect]
     Active Substance: SEMAGLUTIDE
     Indication: Type 2 diabetes mellitus
  4. RYBELSUS [Suspect]
     Active Substance: SEMAGLUTIDE
     Indication: Weight control
  5. RYBELSUS [Suspect]
     Active Substance: SEMAGLUTIDE
     Indication: Glycosylated haemoglobin abnormal
     Route: 048
     Dates: start: 20240206, end: 20240212
  6. RYBELSUS [Suspect]
     Active Substance: SEMAGLUTIDE
     Indication: Type 2 diabetes mellitus

REACTIONS (6)
  - Headache [Not Recovered/Not Resolved]
  - Nausea [Not Recovered/Not Resolved]
  - Vomiting [Recovered/Resolved]
  - Abdominal pain upper [Not Recovered/Not Resolved]
  - Taste disorder [Recovered/Resolved]
  - Asthenia [Not Recovered/Not Resolved]

NARRATIVE: CASE EVENT DATE: 20240106
